FAERS Safety Report 9658135 (Version 1)
Quarter: 2013Q4

REPORT INFORMATION
  Report Type: Spontaneous
  Country: US (occurrence: US)
  Receive Date: 20131030
  Receipt Date: 20131030
  Transmission Date: 20140711
  Serious: No
  Sender: FDA-Public Use
  Company Number: US-PURDUE-USA-2011-0080172

PATIENT
  Age: 64 Year
  Sex: Female

DRUGS (2)
  1. OXYCONTIN (NDA 22-272) [Suspect]
     Indication: PAIN
     Dosage: 60 MG, UNK
     Route: 048
     Dates: start: 201011
  2. OXYCONTIN (NDA 22-272) [Suspect]
     Dosage: 40 MG, TID
     Route: 048
     Dates: start: 201101

REACTIONS (15)
  - Drug withdrawal syndrome [Unknown]
  - Heart rate increased [Unknown]
  - Pain [Unknown]
  - Activities of daily living impaired [Unknown]
  - Unevaluable event [Unknown]
  - Apathy [Unknown]
  - Malaise [Not Recovered/Not Resolved]
  - Product quality issue [Unknown]
  - Drug effect decreased [Unknown]
  - Drug effect delayed [Unknown]
  - Nausea [Not Recovered/Not Resolved]
  - Abdominal pain upper [Unknown]
  - Headache [Recovered/Resolved]
  - Retching [Not Recovered/Not Resolved]
  - Abdominal discomfort [Not Recovered/Not Resolved]
